FAERS Safety Report 22802995 (Version 2)
Quarter: 2023Q4

REPORT INFORMATION
  Report Type: Report from Study
  Country: US (occurrence: US)
  Receive Date: 20230809
  Receipt Date: 20231002
  Transmission Date: 20240109
  Serious: Yes (Hospitalization)
  Sender: FDA-Public Use
  Company Number: US-Accord-371596

PATIENT
  Age: 68 Year
  Sex: Female

DRUGS (1)
  1. CLOZAPINE [Suspect]
     Active Substance: CLOZAPINE
     Indication: Product used for unknown indication
     Dosage: 100 MG AM +AMP; 300 MG PM DAILY
     Route: 048

REACTIONS (3)
  - Joint dislocation [Unknown]
  - Fall [Unknown]
  - Neutrophilia [Unknown]

NARRATIVE: CASE EVENT DATE: 20230824
